FAERS Safety Report 13638267 (Version 9)
Quarter: 2021Q1

REPORT INFORMATION
  Report Type: Spontaneous
  Country: US (occurrence: US)
  Receive Date: 20170609
  Receipt Date: 20210311
  Transmission Date: 20210419
  Serious: No
  Sender: FDA-Public Use
  Company Number: US-PFIZER INC-2017250536

PATIENT
  Age: 59 Year
  Sex: Female

DRUGS (13)
  1. AMITRIPTYLINE HCL [Concomitant]
     Active Substance: AMITRIPTYLINE
     Dosage: UNK
  2. TYLENOL [Concomitant]
     Active Substance: ACETAMINOPHEN
     Dosage: UNK
  3. ATORVASTATIN CALCIUM. [Concomitant]
     Active Substance: ATORVASTATIN CALCIUM
     Dosage: UNK
  4. XELJANZ [Suspect]
     Active Substance: TOFACITINIB CITRATE
     Dosage: 5 MG, 2X/DAY
     Route: 048
     Dates: start: 2014, end: 202011
  5. XELJANZ [Suspect]
     Active Substance: TOFACITINIB CITRATE
     Indication: MYOSITIS
     Dosage: 5 MG, 2X/DAY
     Route: 048
  6. CITALOPRAM [Concomitant]
     Active Substance: CITALOPRAM HYDROBROMIDE
     Dosage: UNK
  7. XELJANZ [Suspect]
     Active Substance: TOFACITINIB CITRATE
     Dosage: 5 MG, 2X/DAY
     Route: 048
     Dates: end: 20210211
  8. CALCIUM [Concomitant]
     Active Substance: CALCIUM
     Dosage: UNK (500(1250) TAB CHEW)
  9. XELJANZ [Suspect]
     Active Substance: TOFACITINIB CITRATE
     Indication: RHEUMATOID ARTHRITIS
     Dosage: 5 MG, 2X/DAY
     Route: 048
     Dates: start: 2014, end: 2019
  10. METHOTREXATE. [Concomitant]
     Active Substance: METHOTREXATE
     Dosage: UNK
  11. PROTONIX [Concomitant]
     Active Substance: PANTOPRAZOLE SODIUM
     Dosage: UNK
  12. LISINOPRIL. [Concomitant]
     Active Substance: LISINOPRIL
     Dosage: UNK
  13. NAPROXEN. [Concomitant]
     Active Substance: NAPROXEN
     Dosage: UNK

REACTIONS (18)
  - Bronchitis [Unknown]
  - Pain in extremity [Unknown]
  - COVID-19 [Recovered/Resolved]
  - Malaise [Recovered/Resolved]
  - Diarrhoea [Recovered/Resolved]
  - Musculoskeletal chest pain [Unknown]
  - Peripheral coldness [Unknown]
  - Headache [Unknown]
  - Back pain [Unknown]
  - Skin lesion [Unknown]
  - Vomiting [Recovered/Resolved]
  - Cough [Unknown]
  - Herpes zoster [Unknown]
  - Dizziness [Recovered/Resolved]
  - Condition aggravated [Recovering/Resolving]
  - Limb discomfort [Unknown]
  - Fatigue [Recovered/Resolved]
  - Product dose omission issue [Unknown]

NARRATIVE: CASE EVENT DATE: 20170820
